FAERS Safety Report 18228234 (Version 1)
Quarter: 2020Q3

REPORT INFORMATION
  Report Type: Report from Study
  Country: IT (occurrence: IT)
  Receive Date: 20200903
  Receipt Date: 20200903
  Transmission Date: 20201103
  Serious: Yes (Other)
  Sender: FDA-Public Use
  Company Number: IT-PFIZER INC-2020334536

PATIENT
  Age: 80 Year
  Sex: Female

DRUGS (1)
  1. SUNITINIB MALATE. [Suspect]
     Active Substance: SUNITINIB MALATE
     Indication: RENAL CANCER STAGE IV
     Dosage: 50 MG, CYCLIC
     Route: 048
     Dates: start: 20160830, end: 20161028

REACTIONS (3)
  - Hypertensive crisis [Recovered/Resolved]
  - Hyponatraemia [Recovered/Resolved]
  - Epistaxis [Recovered/Resolved]
